FAERS Safety Report 24173705 (Version 1)
Quarter: 2024Q3

REPORT INFORMATION
  Report Type: Spontaneous
  Country: ES (occurrence: ES)
  Receive Date: 20240805
  Receipt Date: 20240805
  Transmission Date: 20241017
  Serious: Yes (Death, Hospitalization)
  Sender: AMGEN
  Company Number: ES-ROCHE-3551235

PATIENT
  Age: 48 Year
  Sex: Male
  Weight: 66.5 kg

DRUGS (10)
  1. BEVACIZUMAB [Suspect]
     Active Substance: BEVACIZUMAB
     Indication: Hepatocellular carcinoma
     Dosage: ON 09/APR/2024 RECEIVED MOST RECENT DOSE 1065 MG OF BEVACIZUMAB PRIOR TO AE/SAE
     Route: 040
     Dates: start: 20240321
  2. ACETAMINOPHEN\TRAMADOL [Concomitant]
     Active Substance: ACETAMINOPHEN\TRAMADOL
     Indication: Abdominal pain
     Dosage: 37.5 MILLIGRAM
     Route: 048
     Dates: start: 20240226
  3. TIRAGOLUMAB [Concomitant]
     Active Substance: TIRAGOLUMAB
     Indication: Hepatocellular carcinoma
     Dosage: ON 09/APR/2024 RECEIVED MOST RECENT DOSE OF TIRAGOLUMAB PRIOR TO AE/SAE
     Route: 040
     Dates: start: 20240321
  4. LOPERAMIDE [Concomitant]
     Active Substance: LOPERAMIDE
     Indication: Diarrhoea
     Dosage: 2 MILLIGRAM
     Route: 048
     Dates: start: 20240314
  5. ATEZOLIZUMAB [Concomitant]
     Active Substance: ATEZOLIZUMAB
     Indication: Hepatocellular carcinoma
     Dosage: ON 09/APR/2024 RECEIVED MOST RECENT DOSE 1200MG OF ATEZOLIZUMAB PRIOR TO AE/SAE
     Route: 040
     Dates: start: 20240321
  6. CARVEDILOL [Concomitant]
     Active Substance: CARVEDILOL
     Indication: Varices oesophageal
     Dosage: 6.25 MILLIGRAM, QD
     Route: 048
     Dates: start: 20240221
  7. ESOMEPRAZOLE [Concomitant]
     Active Substance: ESOMEPRAZOLE
     Indication: Product used for unknown indication
     Dosage: 40 MILLIGRAM, QD
     Route: 048
     Dates: start: 20240226
  8. PANCRELIPASE [Concomitant]
     Active Substance: PANCRELIPASE
     Indication: Product used for unknown indication
     Dosage: 50000 INTERNATIONAL UNIT
     Route: 048
     Dates: start: 20240314
  9. ACETAMINOPHEN [Concomitant]
     Active Substance: ACETAMINOPHEN
     Indication: Abdominal pain
     Dosage: 1 GRAM
     Route: 048
     Dates: start: 20240226
  10. VALIUM [Concomitant]
     Active Substance: DIAZEPAM
     Indication: Renal colic
     Dosage: 5 MILLIGRAM, QD
     Route: 048
     Dates: start: 20240226

REACTIONS (3)
  - Death [Fatal]
  - Haematemesis [Recovered/Resolved]
  - Off label use [Unknown]

NARRATIVE: CASE EVENT DATE: 20240321
